FAERS Safety Report 24351736 (Version 1)
Quarter: 2024Q3

REPORT INFORMATION
  Report Type: Report from Study
  Country: PE (occurrence: PE)
  Receive Date: 20240923
  Receipt Date: 20240923
  Transmission Date: 20241016
  Serious: No
  Sender: ROCHE
  Company Number: PE-ROCHE-3563766

PATIENT
  Age: 37 Year
  Sex: Female

DRUGS (9)
  1. HERCEPTIN [Suspect]
     Active Substance: TRASTUZUMAB
     Indication: Breast cancer
     Dosage: SODIUM CHLORIDE 0.9% 250ML
     Route: 041
     Dates: start: 20240119
  2. PERJETA [Suspect]
     Active Substance: PERTUZUMAB
     Indication: Breast cancer
     Dosage: SODIUM CHLORIDE 0.9% 250ML
     Route: 042
     Dates: start: 20240119
  3. SODIUM CHLORIDE [Concomitant]
     Active Substance: SODIUM CHLORIDE
     Route: 042
  4. RANITIDINE [Concomitant]
     Active Substance: RANITIDINE
     Dosage: SODIUM CHLORIDE 0.9% 100ML
     Route: 042
  5. CHLORPHENIRAMINE MALEATE [Concomitant]
     Active Substance: CHLORPHENIRAMINE MALEATE
     Dosage: SODIUM CHLORIDE 0.9% 100ML
     Route: 042
  6. ACETAMINOPHEN [Concomitant]
     Active Substance: ACETAMINOPHEN
  7. DEXAMETHASONE [Concomitant]
     Active Substance: DEXAMETHASONE
     Dosage: SODIUM CHLORIDE 0.9% 100ML
     Route: 042
  8. ONDANSETRON [Concomitant]
     Active Substance: ONDANSETRON
     Dosage: SODIUM CHLORIDE 0.9% 100ML
     Route: 042
  9. APREPITANT [Concomitant]
     Active Substance: APREPITANT
     Route: 048

REACTIONS (2)
  - Product prescribing error [Unknown]
  - No adverse event [Unknown]
